FAERS Safety Report 19481115 (Version 1)
Quarter: 2021Q3

REPORT INFORMATION
  Report Type: Spontaneous
  Country: CN (occurrence: CN)
  Receive Date: 20210701
  Receipt Date: 20210701
  Transmission Date: 20211014
  Serious: Yes (Life-Threatening, Hospitalization, Disabling)
  Sender: FDA-Public Use
  Company Number: CN-JNJFOC-20210667654

PATIENT
  Age: 45 Year
  Sex: Female
  Weight: 85 kg

DRUGS (1)
  1. RIVAROXABAN [Suspect]
     Active Substance: RIVAROXABAN
     Indication: ATRIAL FIBRILLATION
     Dosage: 15 MG, QD
     Route: 048
     Dates: start: 20210524, end: 20210610

REACTIONS (6)
  - Hypopnoea [Unknown]
  - Brain stem haemorrhage [Recovering/Resolving]
  - Product prescribing issue [Unknown]
  - Cerebral haemorrhage [Recovering/Resolving]
  - Thalamus haemorrhage [Recovering/Resolving]
  - Underdose [Unknown]

NARRATIVE: CASE EVENT DATE: 20210524
